FAERS Safety Report 12988375 (Version 1)
Quarter: 2016Q4

REPORT INFORMATION
  Report Type: Spontaneous
  Country: US (occurrence: US)
  Receive Date: 20161130
  Receipt Date: 20161130
  Transmission Date: 20170207
  Serious: Yes (Hospitalization)
  Sender: FDA-Public Use
  Company Number: US-ALLERGAN-1678330US

PATIENT
  Age: 67 Year
  Sex: Male

DRUGS (10)
  1. PREDNISONE. [Concomitant]
     Active Substance: PREDNISONE
     Dosage: UNK
     Dates: start: 201607
  2. METFORMIN [Concomitant]
     Active Substance: METFORMIN HYDROCHLORIDE
     Indication: DIABETES MELLITUS
     Dosage: 80 MG, BID
     Dates: start: 2006
  3. PROGRAF [Concomitant]
     Active Substance: TACROLIMUS\TACROLIMUS ANHYDROUS
     Indication: GRAFT VERSUS HOST DISEASE
     Dosage: 10 MG, NIGHTLY
     Route: 048
     Dates: start: 201607
  4. GLIPIZIDE. [Concomitant]
     Active Substance: GLIPIZIDE
     Indication: DIABETES MELLITUS
     Dosage: 10 MG AM, 5 MG PM
     Dates: start: 2009
  5. LIPITOR [Concomitant]
     Active Substance: ATORVASTATIN CALCIUM
     Dosage: UNK
     Dates: start: 2010
  6. LEVEMIR [Concomitant]
     Active Substance: INSULIN DETEMIR
     Dosage: UNK
     Dates: start: 201608
  7. URSODEOXYCHOLIC ACID - BP [Suspect]
     Active Substance: URSODIOL
     Indication: RENAL IMPAIRMENT
     Dosage: 300 MG, TID
     Dates: start: 201606
  8. VFEND [Concomitant]
     Active Substance: VORICONAZOLE
     Indication: INFECTION
     Dosage: 200 MG, BID
     Dates: start: 201607
  9. PROTONIX [Concomitant]
     Active Substance: PANTOPRAZOLE SODIUM
     Dosage: 40 MG, UNK
     Dates: start: 201511
  10. MAG-OX [Concomitant]
     Active Substance: MAGNESIUM OXIDE
     Dosage: 241 MG, UNK
     Dates: start: 201607

REACTIONS (3)
  - Blood glucose fluctuation [Not Recovered/Not Resolved]
  - Tremor [Recovered/Resolved]
  - Oral infection [Recovered/Resolved]

NARRATIVE: CASE EVENT DATE: 201606
